FAERS Safety Report 5024149-8 (Version None)
Quarter: 2006Q2

REPORT INFORMATION
  Report Type: 
  Country: None (occurrence: None)
  Receive Date: 20060607
  Receipt Date: 20060523
  Transmission Date: 20061013
  Serious: Yes (Hospitalization)
  Sender: FDA-Public Use
  Company Number: 2005161699

PATIENT
  Age: 49 Year
  Sex: Male

DRUGS (4)
  1. CELEBREX [Suspect]
     Indication: PAIN
  2. BEXTRA [Suspect]
     Indication: PAIN
  3. VIOXX [Suspect]
     Indication: ILL-DEFINED DISORDER
  4. PRILOSEC [Concomitant]

REACTIONS (4)
  - CARDIOVASCULAR DISORDER [None]
  - RETINAL DISORDER [None]
  - THROMBOSIS [None]
  - TRANSIENT ISCHAEMIC ATTACK [None]
